FAERS Safety Report 12231388 (Version 1)
Quarter: 2016Q2

REPORT INFORMATION
  Report Type: Report from Study
  Country: BR (occurrence: BR)
  Receive Date: 20160401
  Receipt Date: 20160401
  Transmission Date: 20160815
  Serious: Yes (Hospitalization)
  Sender: FDA-Public Use
  Company Number: BR-BAYER-2016-060352

PATIENT
  Age: 49 Year
  Sex: Male

DRUGS (9)
  1. CHLORPROMAZINE HYDROCHLORIDE. [Concomitant]
     Active Substance: CHLORPROMAZINE HYDROCHLORIDE
     Indication: HICCUPS
     Dosage: 40 MG, UNK
     Route: 048
     Dates: start: 20160312
  2. HYDROCHLOROTHIAZIDE. [Concomitant]
     Active Substance: HYDROCHLOROTHIAZIDE
     Indication: HYPERTENSION
     Dosage: 25 MG, UNK
     Route: 048
  3. CIPROFLOXACIN HYDROCHLORIDE. [Concomitant]
     Active Substance: CIPROFLOXACIN HYDROCHLORIDE
     Indication: PRODUCT USED FOR UNKNOWN INDICATION
     Dosage: 500 MG, UNK
     Route: 048
     Dates: start: 20160312
  4. ACEBROFYLLINE [Concomitant]
     Indication: LUNG DISORDER
     Dosage: UNK
     Route: 048
     Dates: start: 20160312
  5. POTASSIUM CHLORIDE. [Concomitant]
     Active Substance: POTASSIUM CHLORIDE
     Indication: ELECTROLYTE SUBSTITUTION THERAPY
     Dosage: 600 MG, UNK
     Route: 048
     Dates: start: 20160312
  6. BETAFERON [Suspect]
     Active Substance: INTERFERON BETA-1B
     Indication: SECONDARY PROGRESSIVE MULTIPLE SCLEROSIS
     Dosage: UNK
     Route: 058
     Dates: start: 2005, end: 201603
  7. ENALAPRIL [Concomitant]
     Active Substance: ENALAPRIL
     Indication: HYPERTENSION
     Dosage: 10 MG, UNK
     Route: 048
  8. RANITIDINE. [Concomitant]
     Active Substance: RANITIDINE
     Indication: PROPHYLAXIS
     Dosage: 150 MG, UNK
     Route: 048
     Dates: start: 20160312
  9. LACTULOSE. [Concomitant]
     Active Substance: LACTULOSE
     Indication: CONSTIPATION
     Dosage: 667 MG, UNK
     Route: 048
     Dates: start: 20160312

REACTIONS (7)
  - White blood cell count decreased [Recovered/Resolved]
  - Anaemia [Recovered/Resolved]
  - Immunodeficiency [Recovered/Resolved]
  - Neutropenia [Recovered/Resolved]
  - Urinary tract infection [Not Recovered/Not Resolved]
  - Pyrexia [Recovered/Resolved]
  - Balance disorder [Recovered/Resolved]

NARRATIVE: CASE EVENT DATE: 20160217
